FAERS Safety Report 5528095-2 (Version None)
Quarter: 2007Q4

REPORT INFORMATION
  Report Type: 
  Country: None (occurrence: None)
  Receive Date: 20071126
  Receipt Date: 20071126
  Transmission Date: 20080405
  Serious: Yes (Other)
  Sender: FDA-Public Use
  Company Number: None

PATIENT
  Age: 75 Year
  Weight: 70.3075 kg

DRUGS (1)
  1. PREDNISONE TAB [Suspect]
     Indication: BRONCHITIS
     Dates: start: 20071120, end: 20071122

REACTIONS (4)
  - ABNORMAL BEHAVIOUR [None]
  - DELUSION [None]
  - MENTAL DISORDER [None]
  - NEUROSIS [None]
